FAERS Safety Report 10745676 (Version 1)
Quarter: 2015Q1

REPORT INFORMATION
  Report Type: Spontaneous
  Country: US (occurrence: None)
  Receive Date: 20150120
  Receipt Date: 20150120
  Transmission Date: 20150721
  Serious: No
  Sender: FDA-Public Use
  Company Number: AEGR000960

PATIENT
  Age: 64 Year
  Sex: Male
  Weight: 89.8 kg

DRUGS (10)
  1. MULTIVITAMIN (VITAMIN NOS) [Concomitant]
  2. FISH OIL (COD-LIVER OIL) [Concomitant]
  3. B COMPLEX B12 (VITAMIN B COMPLEX) [Concomitant]
  4. JUXTAPID [Suspect]
     Active Substance: LOMITAPIDE MESYLATE
     Indication: TYPE IIA HYPERLIPIDAEMIA
     Route: 048
     Dates: start: 20130625, end: 20131027
  5. ASPIRIN. [Concomitant]
     Active Substance: ASPIRIN
  6. PLAVIX (CLOPIDOGREL BISULFATE) [Concomitant]
  7. METOPROLOL (METOPROLOL TARTRATE) [Concomitant]
     Active Substance: METOPROLOL TARTRATE
  8. VITAMIN E (TOCOPHERYL ACETATE) [Concomitant]
  9. LOSARTAN (LOSARTAN) [Concomitant]
     Active Substance: LOSARTAN
  10. CRESTOR [Concomitant]
     Active Substance: ROSUVASTATIN CALCIUM

REACTIONS (7)
  - Weight decreased [None]
  - Off label use [None]
  - Fat tissue increased [None]
  - Musculoskeletal stiffness [None]
  - Palpitations [None]
  - Muscle twitching [None]
  - Dyspepsia [None]

NARRATIVE: CASE EVENT DATE: 201306
